FAERS Safety Report 9309811 (Version 2)
Quarter: 2013Q4

REPORT INFORMATION
  Report Type: Spontaneous
  Country: US (occurrence: US)
  Receive Date: 20130525
  Receipt Date: 20131106
  Transmission Date: 20140711
  Serious: No
  Sender: FDA-Public Use
  Company Number: US201207005948

PATIENT
  Age: 61 Year
  Sex: Female
  Weight: 85.71 kg

DRUGS (3)
  1. BYDUREON 2MG VIAL + SYRINGE [Suspect]
     Indication: TYPE 2 DIABETES MELLITUS
     Route: 058
     Dates: start: 2012
  2. BYDUREON 2MG VIAL + SYRINGE [Suspect]
     Indication: TYPE 2 DIABETES MELLITUS
     Route: 058
     Dates: start: 201202, end: 2012
  3. LANTUS [Concomitant]

REACTIONS (5)
  - Glycosylated haemoglobin increased [Unknown]
  - Weight decreased [Not Recovered/Not Resolved]
  - Intentional drug misuse [Recovered/Resolved]
  - Injection site haemorrhage [Recovered/Resolved]
  - Underdose [Unknown]
